FAERS Safety Report 6293285-0 (Version None)
Quarter: 2009Q3

REPORT INFORMATION
  Report Type: 
  Country: None (occurrence: None)
  Receive Date: 20090731
  Receipt Date: 20090723
  Transmission Date: 20100115
  Serious: Yes (Hospitalization)
  Sender: FDA-Public Use
  Company Number: US-AMGEN-QUU357124

PATIENT
  Sex: Female

DRUGS (4)
  1. ENBREL [Suspect]
     Indication: RHEUMATOID ARTHRITIS
     Route: 058
     Dates: start: 19980301
  2. VIOXX [Concomitant]
  3. CELEBREX [Concomitant]
  4. METHOTREXATE [Concomitant]

REACTIONS (11)
  - ABDOMINAL DISCOMFORT [None]
  - ARTHROPOD BITE [None]
  - ASTHENIA [None]
  - ATRIAL FIBRILLATION [None]
  - CATARACT [None]
  - DRY EYE [None]
  - ERYTHEMA [None]
  - NAUSEA [None]
  - OSTEOARTHRITIS [None]
  - RHEUMATOID ARTHRITIS [None]
  - TREMOR [None]
